FAERS Safety Report 11485968 (Version 2)
Quarter: 2015Q4

REPORT INFORMATION
  Report Type: Spontaneous
  Country: US (occurrence: US)
  Receive Date: 20150910
  Receipt Date: 20151007
  Transmission Date: 20160304
  Serious: No
  Sender: FDA-Public Use
  Company Number: US-ASTRAZENECA-2015SE84031

PATIENT
  Age: 59 Year
  Sex: Female
  Weight: 85.7 kg

DRUGS (7)
  1. SYNTHROID [Concomitant]
     Active Substance: LEVOTHYROXINE SODIUM
     Indication: THYROID DISORDER
  2. BYDUREON [Suspect]
     Active Substance: EXENATIDE
     Indication: TYPE 2 DIABETES MELLITUS
     Route: 058
     Dates: start: 201506
  3. LASIX [Concomitant]
     Active Substance: FUROSEMIDE
  4. TALWIN [Concomitant]
     Active Substance: PENTAZOCINE LACTATE
     Indication: BACK PAIN
  5. CORTICOSTEROID NOS [Suspect]
     Active Substance: CORTICOSTEROID NOS
     Indication: SINUSITIS
     Route: 065
     Dates: start: 20150828
  6. COREG [Concomitant]
     Active Substance: CARVEDILOL
  7. DAYPRO [Concomitant]
     Active Substance: OXAPROZIN

REACTIONS (4)
  - Sinusitis [Unknown]
  - Weight decreased [Unknown]
  - Product quality issue [Unknown]
  - Blood glucose increased [Unknown]

NARRATIVE: CASE EVENT DATE: 2015
